FAERS Safety Report 5229841-8 (Version None)
Quarter: 2007Q1

REPORT INFORMATION
  Report Type: 
  Country: None (occurrence: None)
  Receive Date: 20070206
  Receipt Date: 20060705
  Transmission Date: 20070707
  Serious: No
  Sender: FDA-Public Use
  Company Number: US-GLAXOSMITHKLINE-A0558619A

PATIENT
  Age: 40 Year
  Sex: Female

DRUGS (3)
  1. PAXIL [Suspect]
     Indication: DEPRESSION
     Route: 048
     Dates: start: 20020101
  2. BUSPAR [Concomitant]
     Indication: ANXIETY
  3. PROZAC [Concomitant]

REACTIONS (24)
  - ABNORMAL DREAMS [None]
  - AGORAPHOBIA [None]
  - ANGER [None]
  - ANXIETY [None]
  - BRUXISM [None]
  - DIZZINESS [None]
  - DRUG TOXICITY [None]
  - DRUG WITHDRAWAL SYNDROME [None]
  - DYSGEUSIA [None]
  - DYSKINESIA [None]
  - HYPERHIDROSIS [None]
  - HYPOAESTHESIA ORAL [None]
  - ILLUSION [None]
  - INSOMNIA [None]
  - JOINT SPRAIN [None]
  - MUSCLE CONTRACTIONS INVOLUNTARY [None]
  - MUSCLE SPASMS [None]
  - MUSCLE TIGHTNESS [None]
  - MUSCLE TWITCHING [None]
  - MYALGIA [None]
  - NIGHTMARE [None]
  - PARANOIA [None]
  - THINKING ABNORMAL [None]
  - TINNITUS [None]
